FAERS Safety Report 4993456-7 (Version None)
Quarter: 2006Q2

REPORT INFORMATION
  Report Type: 
  Country: None (occurrence: None)
  Receive Date: 20060504
  Receipt Date: 20060504
  Transmission Date: 20061013
  Serious: Yes (Hospitalization)
  Sender: FDA-Public Use
  Company Number: None

PATIENT
  Age: 39 Year
  Sex: Female

DRUGS (2)
  1. LUPRON [Suspect]
     Indication: ANOVULATORY CYCLE
  2. HUMAN MENOPAUSAL GONADOTROPIN [Suspect]
     Indication: INFERTILITY FEMALE
     Dosage: HMG 10, 000 IU

REACTIONS (1)
  - OVARIAN HYPERSTIMULATION SYNDROME [None]
